FAERS Safety Report 22116234 (Version 1)
Quarter: 2023Q1

REPORT INFORMATION
  Report Type: Spontaneous
  Country: US (occurrence: US)
  Receive Date: 20230320
  Receipt Date: 20230320
  Transmission Date: 20230418
  Serious: No
  Sender: FDA-Public Use
  Company Number: US-PERRIGO-22US014889

PATIENT
  Sex: Female

DRUGS (2)
  1. MIDOL LONG LASTING RELIEF [Suspect]
     Active Substance: ACETAMINOPHEN
     Indication: Dysmenorrhoea
     Dosage: UNKNOWN, UNKNOWN
     Route: 048
     Dates: start: 202202
  2. MIDOL LONG LASTING RELIEF [Suspect]
     Active Substance: ACETAMINOPHEN
     Indication: Abdominal pain

REACTIONS (1)
  - Therapeutic product effect incomplete [Unknown]

NARRATIVE: CASE EVENT DATE: 20220201
